FAERS Safety Report 7272345-1 (Version None)
Quarter: 2011Q1

REPORT INFORMATION
  Report Type: 
  Country: None (occurrence: None)
  Receive Date: 20110203
  Receipt Date: 20110128
  Transmission Date: 20110831
  Serious: Yes (Death, Hospitalization, Disabling, Other)
  Sender: FDA-Public Use
  Company Number: PHHY2010JP79119

PATIENT
  Sex: Female

DRUGS (6)
  1. SORAFENIB TOSILATE [Concomitant]
     Dosage: 800 DF, UNK
     Route: 048
     Dates: start: 20090903, end: 20100722
  2. AFINITOR [Suspect]
     Indication: METASTATIC RENAL CELL CARCINOMA
     Dosage: 10 MG, DAILY
     Route: 048
     Dates: start: 20100813, end: 20100927
  3. ZITHROMAX [Concomitant]
     Indication: METASTATIC RENAL CELL CARCINOMA
     Dosage: 500 MG, UNK
     Route: 048
     Dates: start: 20100930, end: 20101002
  4. SUNITINIB MALATE [Concomitant]
     Indication: METASTATIC RENAL CELL CARCINOMA
     Dosage: 37.5 DF, UNK
     Route: 048
     Dates: start: 20080610, end: 20090729
  5. INTERFERON ALFA [Concomitant]
     Indication: METASTATIC RENAL CELL CARCINOMA
     Dosage: 6000000 IU, UNK
     Dates: start: 20040322, end: 20070222
  6. TECELEUKIN [Concomitant]
     Indication: METASTATIC RENAL CELL CARCINOMA
     Dates: start: 20070531, end: 20080529

REACTIONS (5)
  - PNEUMONIA [None]
  - ACUTE RESPIRATORY DISTRESS SYNDROME [None]
  - ASPARTATE AMINOTRANSFERASE INCREASED [None]
  - NEOPLASM MALIGNANT [None]
  - ALANINE AMINOTRANSFERASE INCREASED [None]
